FAERS Safety Report 8187794-7 (Version None)
Quarter: 2012Q1

REPORT INFORMATION
  Report Type: 
  Country: None (occurrence: None)
  Receive Date: 20120306
  Receipt Date: 20120223
  Transmission Date: 20120608
  Serious: Yes (Hospitalization, Other)
  Sender: FDA-Public Use
  Company Number: CA-ROCHE-1041743

PATIENT
  Sex: Male

DRUGS (2)
  1. XOLAIR [Suspect]
     Route: 058
     Dates: start: 20120126
  2. XOLAIR [Suspect]
     Indication: ASTHMA
     Route: 058
     Dates: start: 20051215

REACTIONS (9)
  - ASTHENIA [None]
  - PYREXIA [None]
  - MUSCULOSKELETAL CHEST PAIN [None]
  - FEELING ABNORMAL [None]
  - DIZZINESS [None]
  - NAUSEA [None]
  - CHILLS [None]
  - THIRST [None]
  - COUGH [None]
